FAERS Safety Report 4585681-4 (Version None)
Quarter: 2005Q1

REPORT INFORMATION
  Report Type: 
  Country: None (occurrence: None)
  Receive Date: 20050217
  Receipt Date: 20050210
  Transmission Date: 20050727
  Serious: Yes (Hospitalization)
  Sender: FDA-Public Use
  Company Number: FR-MERCK-0502FRA00044

PATIENT
  Age: 52 Year
  Sex: Female
  Weight: 130 kg

DRUGS (9)
  1. HYZAAR [Suspect]
     Indication: HYPERTENSION
     Route: 048
     Dates: end: 20040616
  2. LEVOTHYROXINE SODIUM [Suspect]
     Indication: HYPOTHYROIDISM
     Route: 048
  3. SPIRONOLACTONE [Suspect]
     Indication: HYPERTENSION
     Route: 048
     Dates: end: 20040622
  4. NOMEGESTROL [Suspect]
     Indication: POSTMENOPAUSE
     Route: 048
  5. ESTRADIOL [Suspect]
     Indication: POSTMENOPAUSE
     Route: 061
  6. ABACAVIR SULFATE AND LAMIVUDINE AND ZIDOVUDINE [Suspect]
     Indication: HIV INFECTION
     Route: 048
     Dates: start: 20020207
  7. CIPROFIBRATE [Concomitant]
     Indication: HYPERLIPIDAEMIA
     Route: 048
  8. NADOLOL [Concomitant]
     Route: 048
  9. HEPARIN LOW MOLECULAR WEIGHT [Concomitant]
     Indication: THROMBOSIS PROPHYLAXIS
     Route: 058
     Dates: end: 20040612

REACTIONS (2)
  - DEEP VEIN THROMBOSIS [None]
  - PULMONARY EMBOLISM [None]
